FAERS Safety Report 4887245-1 (Version None)
Quarter: 2005Q4

REPORT INFORMATION
  Report Type: 
  Country: None (occurrence: None)
  Receive Date: 20051221
  Receipt Date: 20050823
  Transmission Date: 20060501
  Serious: No
  Sender: FDA-Public Use
  Company Number: US-YAMANOUCHI-YPA20050459

PATIENT
  Age: 75 Year
  Sex: Male
  Weight: 61.2356 kg

DRUGS (10)
  1. VESICARE [Suspect]
     Indication: HYPERTONIC BLADDER
     Dosage: 5 MG QD PO
     Route: 048
     Dates: start: 20050701, end: 20050801
  2. VESICARE [Suspect]
     Indication: HYPERTONIC BLADDER
     Dosage: 10 MG QD PO
     Route: 048
     Dates: start: 20050801, end: 20050801
  3. VESICARE [Suspect]
     Indication: HYPERTONIC BLADDER
     Dosage: 5 MG QD PO
     Route: 048
     Dates: start: 20050801
  4. MOBIC [Concomitant]
  5. FOSAMAX [Concomitant]
  6. CIPRO [Concomitant]
  7. DOXYCYCLINE [Concomitant]
  8. NEXIUM [Concomitant]
  9. ALLOPURINOL [Concomitant]
  10. DOCUSATE [Concomitant]

REACTIONS (3)
  - ABDOMINAL PAIN UPPER [None]
  - CONSTIPATION [None]
  - DRUG INEFFECTIVE [None]
